FAERS Safety Report 7425787-5 (Version None)
Quarter: 2011Q2

REPORT INFORMATION
  Report Type: 
  Country: None (occurrence: None)
  Receive Date: 20110418
  Receipt Date: 20110418
  Transmission Date: 20111010
  Serious: Yes (Disabling, Other)
  Sender: FDA-Public Use
  Company Number: None

PATIENT
  Age: 62 Year
  Sex: Female

DRUGS (5)
  1. NEXIUM [Concomitant]
  2. FOLIC ACID [Concomitant]
  3. DAYPRO [Concomitant]
  4. METHOTREXATE [Concomitant]
  5. ENBREL [Suspect]
     Indication: RHEUMATOID ARTHRITIS

REACTIONS (1)
  - B-CELL LYMPHOMA [None]
